APPROVED DRUG PRODUCT: DETECTNET
Active Ingredient: COPPER CU-64 DOTATATE
Strength: 4mL (1mCi/ML)
Dosage Form/Route: SOLUTION;INTRAVENOUS
Application: N213227 | Product #001
Applicant: CURIUM US LLC
Approved: Sep 3, 2020 | RLD: Yes | RS: Yes | Type: RX

PATENTS:
Patent 10159759 | Expires: Aug 23, 2032
Patent 10383961 | Expires: Jul 2, 2033
Patent 11160888 | Expires: Aug 23, 2032
Patent 12102696 | Expires: Sep 3, 2041

EXCLUSIVITY:
Code: ODE-317 | Date: Sep 3, 2027